FAERS Safety Report 6177627-2 (Version None)
Quarter: 2009Q2

REPORT INFORMATION
  Report Type: 
  Country: None (occurrence: None)
  Receive Date: 20090501
  Receipt Date: 20090501
  Transmission Date: 20091009
  Serious: No
  Sender: FDA-Public Use
  Company Number: None

PATIENT
  Age: 46 Year
  Sex: Male
  Weight: 87 kg

DRUGS (5)
  1. HYDROMORPHONE HCL [Suspect]
     Indication: PAIN
     Dosage: PCA 12/4/10
     Dates: start: 20090223
  2. BISACODYL [Concomitant]
  3. TEMAZEPAM [Concomitant]
  4. LORAZEPAM [Concomitant]
  5. ONDANSETRON [Concomitant]

REACTIONS (2)
  - DYSPNOEA [None]
  - LETHARGY [None]
